FAERS Safety Report 4636975-5 (Version None)
Quarter: 2005Q2

REPORT INFORMATION
  Report Type: 
  Country: None (occurrence: None)
  Receive Date: 20050414
  Receipt Date: 20050331
  Transmission Date: 20051028
  Serious: Yes (Hospitalization)
  Sender: FDA-Public Use
  Company Number: 141748USA

PATIENT
  Age: 61 Year
  Sex: Female

DRUGS (1)
  1. PROPOFOL [Suspect]
     Indication: SEDATION
     Dates: start: 20050320, end: 20050320

REACTIONS (6)
  - CONTUSION [None]
  - EXTRAVASATION [None]
  - INFUSION RELATED REACTION [None]
  - INJECTION SITE REACTION [None]
  - STAPHYLOCOCCAL INFECTION [None]
  - THERMAL BURN [None]
